FAERS Safety Report 9156769 (Version 1)
Quarter: 2013Q1

REPORT INFORMATION
  Report Type: Spontaneous
  Country: US (occurrence: None)
  Receive Date: 20130211
  Receipt Date: 20130211
  Transmission Date: 20140127
  Serious: Yes (Hospitalization, Other)
  Sender: FDA-Public Use
  Company Number: 2013MA000927

PATIENT
  Sex: Female

DRUGS (1)
  1. ALPRAZOLAM TABLET USP, 0.5 MG (PUREPAC) [Suspect]
     Indication: ANXIETY
     Dosage: QHS
     Route: 048

REACTIONS (5)
  - Nausea [None]
  - Abdominal discomfort [None]
  - Anxiety [None]
  - Syncope [None]
  - Fall [None]
